FAERS Safety Report 15335625 (Version 1)
Quarter: 2018Q4

REPORT INFORMATION
  Report Type: Spontaneous
  Country: FR (occurrence: FR)
  Receive Date: 20180830
  Receipt Date: 20180830
  Transmission Date: 20190204
  Serious: Yes (Hospitalization)
  Sender: FDA-Public Use
  Company Number: FR-PFIZER INC-2018343273

PATIENT
  Age: 88 Year
  Sex: Male
  Weight: 72 kg

DRUGS (8)
  1. PLAVIX [Concomitant]
     Active Substance: CLOPIDOGREL BISULFATE
     Dosage: UNK
  2. CRESTOR [Concomitant]
     Active Substance: ROSUVASTATIN CALCIUM
     Dosage: UNK
  3. AMLODIPINE [Concomitant]
     Active Substance: AMLODIPINE BESYLATE
     Dosage: UNK
  4. SOTALOL [SOTALOL HYDROCHLORIDE] [Concomitant]
     Dosage: UNK
  5. EXELON [Suspect]
     Active Substance: RIVASTIGMINE TARTRATE
     Indication: DEMENTIA ALZHEIMER^S TYPE
     Dosage: 1 DF, 1X/DAY
     Route: 062
     Dates: end: 20180701
  6. IKOREL [Concomitant]
     Active Substance: NICORANDIL
     Dosage: UNK
  7. ALPRAZOLAM. [Suspect]
     Active Substance: ALPRAZOLAM
     Indication: ANXIETY
     Dosage: 0.25 MG, 1X/DAY
     Route: 048
  8. DOLIPRANE [Concomitant]
     Active Substance: ACETAMINOPHEN
     Dosage: UNK

REACTIONS (3)
  - Confusional state [Recovering/Resolving]
  - Gait disturbance [Recovering/Resolving]
  - Constipation [Recovering/Resolving]

NARRATIVE: CASE EVENT DATE: 20180629
